FAERS Safety Report 18547036 (Version 4)
Quarter: 2022Q4

REPORT INFORMATION
  Report Type: Spontaneous
  Country: US (occurrence: US)
  Receive Date: 20201125
  Receipt Date: 20221028
  Transmission Date: 20230112
  Serious: No
  Sender: FDA-Public Use
  Company Number: US-PFIZER INC-2020463351

PATIENT
  Age: 93 Year
  Sex: Female

DRUGS (1)
  1. XELJANZ XR [Suspect]
     Active Substance: TOFACITINIB CITRATE
     Dosage: 11 MG, 1X/DAY, [DIRECTIONS TAKE 1 TABLET BY MOUTH EVERY DAY AS DIRECTED BY PHYSICIAN]
     Route: 048

REACTIONS (3)
  - Joint swelling [Unknown]
  - Hypoacusis [Unknown]
  - Visual impairment [Unknown]
